FAERS Safety Report 11517124 (Version 1)
Quarter: 2015Q3

REPORT INFORMATION
  Report Type: Spontaneous
  Country: US (occurrence: None)
  Receive Date: 20150916
  Receipt Date: 20150916
  Transmission Date: 20151125
  Serious: Yes (Hospitalization)
  Sender: FDA-Public Use
  Company Number: None

PATIENT
  Age: 37 Year
  Sex: Male
  Weight: 88.3 kg

DRUGS (5)
  1. VANCOMYCIN [Concomitant]
     Active Substance: VANCOMYCIN
  2. IDARUBICIN [Suspect]
     Active Substance: IDARUBICIN
     Dates: end: 20150910
  3. ITRACONAZOLE. [Concomitant]
     Active Substance: ITRACONAZOLE
  4. CYTARABINE. [Suspect]
     Active Substance: CYTARABINE
     Dates: end: 20150911
  5. PIPERICILLIN [Concomitant]

REACTIONS (6)
  - Drug ineffective [None]
  - Febrile neutropenia [None]
  - Tachycardia [None]
  - Mental status changes [None]
  - Sepsis [None]
  - Systemic inflammatory response syndrome [None]

NARRATIVE: CASE EVENT DATE: 20150912
